FAERS Safety Report 14266516 (Version 3)
Quarter: 2018Q1

REPORT INFORMATION
  Report Type: Other
  Country: ES (occurrence: ES)
  Receive Date: 20171211
  Receipt Date: 20180228
  Transmission Date: 20180508
  Serious: Yes (Hospitalization)
  Sender: FDA-Public Use
  Company Number: ES-MACLEODS PHARMACEUTICALS US LTD-MAC2017006451

PATIENT

DRUGS (24)
  1. TIOTROPIUM BROMIDE [Concomitant]
     Active Substance: TIOTROPIUM BROMIDE
     Indication: PROPHYLAXIS
     Dosage: 18 ?G, QD
     Route: 048
     Dates: start: 20141130
  2. VALSARTAN, SACUBITRIL [Suspect]
     Active Substance: SACUBITRIL\VALSARTAN
     Indication: ACUTE MYOCARDIAL INFARCTION
     Dosage: UNK, CODE NOT BROKEN
     Route: 048
     Dates: start: 20170505
  3. FUROSEMIDE. [Concomitant]
     Active Substance: FUROSEMIDE
     Indication: HYPERTENSION
     Dosage: 20 MG, QD
     Route: 048
     Dates: start: 20170519
  4. SODIUM CHLORIDE SOLUTION [Concomitant]
     Active Substance: SODIUM CHLORIDE
     Indication: PRODUCT USED FOR UNKNOWN INDICATION
     Dosage: UNK ML, UNK, 0.9%
     Route: 065
     Dates: start: 20170501
  5. CLOPIDOGREL [Suspect]
     Active Substance: CLOPIDOGREL BISULFATE
     Indication: ISCHAEMIC CARDIOMYOPATHY
     Dosage: 100 MG, QD
     Route: 048
     Dates: start: 20170505
  6. METFORMIN HYDROCHLORIDE. [Concomitant]
     Active Substance: METFORMIN HYDROCHLORIDE
     Indication: TYPE 2 DIABETES MELLITUS
     Dosage: 850 MG, QD
     Route: 048
     Dates: start: 20080207
  7. OMEPRAZOLE 20 MG [Concomitant]
     Active Substance: OMEPRAZOLE
     Indication: PROPHYLAXIS AGAINST GASTROINTESTINAL ULCER
     Dosage: 20 MG, QD
     Route: 048
     Dates: start: 20080207
  8. TAMSULOSIN [Concomitant]
     Active Substance: TAMSULOSIN
     Indication: URINARY TRACT DISORDER
     Dosage: 1 UNK, UNK, 0.4 MG, QD
     Route: 048
     Dates: start: 20170511
  9. ACENOCOUMAROL [Concomitant]
     Active Substance: ACENOCOUMAROL
     Indication: ATRIAL FIBRILLATION
     Dosage: 4 MG, QOD
     Route: 048
     Dates: start: 20170511
  10. PITAVASTATIN. [Concomitant]
     Active Substance: PITAVASTATIN CALCIUM
     Indication: HYPERCHOLESTEROLAEMIA
     Dosage: 4 MG, QD
     Route: 048
     Dates: start: 20170512
  11. SPIRIVA [Concomitant]
     Active Substance: TIOTROPIUM BROMIDE MONOHYDRATE
     Indication: PROPHYLAXIS
     Dosage: 18 ?G, QD
     Route: 048
     Dates: start: 20141130
  12. CLOPIDOGREL [Suspect]
     Active Substance: CLOPIDOGREL BISULFATE
     Indication: ANTICOAGULANT THERAPY
     Dosage: 75 MG, QD
     Route: 048
     Dates: start: 20170504, end: 20170504
  13. ASPIRIN. [Suspect]
     Active Substance: ASPIRIN
     Indication: ISCHAEMIC HEART DISEASE PROPHYLAXIS
     Dosage: 100 MG, QD
     Route: 048
     Dates: start: 20170207
  14. BLINDED NO TREATMENT RECEIVED [Suspect]
     Active Substance: INVESTIGATIONAL PRODUCT
     Indication: ACUTE MYOCARDIAL INFARCTION
     Dosage: UNK, CODE NOT BROKEN
     Route: 048
     Dates: start: 20170505
  15. AMIODARONE HYDROCHLORIDE. [Concomitant]
     Active Substance: AMIODARONE HYDROCHLORIDE
     Indication: ARRHYTHMIA PROPHYLAXIS
     Dosage: 200 MG, QD
     Route: 048
     Dates: start: 20170511
  16. BISOPROLOL [Concomitant]
     Active Substance: BISOPROLOL
     Indication: ISCHAEMIC CARDIOMYOPATHY
     Dosage: 3 MG, QD
     Route: 048
     Dates: start: 20170504
  17. VALSARTAN. [Suspect]
     Active Substance: VALSARTAN
     Indication: ACUTE MYOCARDIAL INFARCTION
     Dosage: UNK, CODE NOT BROKEN
     Route: 048
     Dates: start: 20170505
  18. RAMIPRIL. [Suspect]
     Active Substance: RAMIPRIL
     Indication: ACUTE MYOCARDIAL INFARCTION
     Dosage: UNK, CODE NOT BROKEN
     Route: 048
     Dates: start: 20170505
  19. ACENOCOUMAROL [Concomitant]
     Active Substance: ACENOCOUMAROL
     Indication: ATRIAL FIBRILLATION
  20. ESPIRONOLACTON [Concomitant]
     Active Substance: SPIRONOLACTONE
     Indication: MYOCARDIAL INFARCTION
     Dosage: 25 MG, QD
     Route: 048
     Dates: start: 20170504
  21. BISOPROLOL [Concomitant]
     Active Substance: BISOPROLOL
     Indication: ANGINA PECTORIS
  22. GLICLAZIDE [Concomitant]
     Active Substance: GLICLAZIDE
     Indication: TYPE 2 DIABETES MELLITUS
     Dosage: 30 MG, QD
     Route: 048
     Dates: start: 20141001
  23. LORAZEPAM. [Concomitant]
     Active Substance: LORAZEPAM
     Indication: ANXIOLYTIC THERAPY
     Dosage: 1 MG, QD
     Route: 048
     Dates: start: 20170501
  24. SODIUM CHLORIDE SOLUTION [Concomitant]
     Active Substance: SODIUM CHLORIDE
     Dosage: 1000 UNK, UNK
     Route: 042
     Dates: start: 20170531, end: 20170531

REACTIONS (1)
  - Haematuria [Recovered/Resolved]

NARRATIVE: CASE EVENT DATE: 20170515
